FAERS Safety Report 9976677 (Version 1)
Quarter: 2014Q1

REPORT INFORMATION
  Report Type: Report from Study
  Country: US (occurrence: US)
  Receive Date: 20140306
  Receipt Date: 20140306
  Transmission Date: 20141002
  Serious: No
  Sender: FDA-Public Use
  Company Number: US-ABBVIE-13P-163-1166748-00

PATIENT
  Age: 52 Year
  Sex: Female
  Weight: 79.45 kg

DRUGS (9)
  1. HUMIRA [Suspect]
     Indication: RHEUMATOID ARTHRITIS
     Dates: start: 201001, end: 201206
  2. DICLOFENAC [Suspect]
     Indication: RHEUMATOID ARTHRITIS
     Dates: start: 201306
  3. DILTIAZEM [Concomitant]
     Indication: HYPERTENSION
  4. IPRATROPIUM BROMIDE [Concomitant]
     Indication: SNEEZING
  5. IPRATROPIUM BROMIDE [Concomitant]
     Indication: HYPERSENSITIVITY
  6. NEXIUM [Concomitant]
     Indication: GASTROOESOPHAGEAL REFLUX DISEASE
  7. PLAQUENIL [Concomitant]
     Indication: SYSTEMIC LUPUS ERYTHEMATOSUS
  8. VENLAFAXINE [Concomitant]
     Indication: DEPRESSION
  9. LIPODERM [Concomitant]
     Indication: PAIN

REACTIONS (7)
  - Pruritus [Not Recovered/Not Resolved]
  - Cough [Recovered/Resolved]
  - Bronchitis chronic [Recovered/Resolved]
  - Bronchopneumonia [Recovered/Resolved]
  - Rash [Not Recovered/Not Resolved]
  - Pharyngitis streptococcal [Recovered/Resolved]
  - Pyrexia [Recovered/Resolved]
